FAERS Safety Report 10473627 (Version 1)
Quarter: 2014Q3

REPORT INFORMATION
  Report Type: Spontaneous
  Country: DE (occurrence: None)
  Receive Date: 20140922
  Receipt Date: 20140922
  Transmission Date: 20150326
  Serious: Yes (Other)
  Sender: FDA-Public Use
  Company Number: COL_17902_2014

PATIENT
  Sex: Female

DRUGS (1)
  1. ELMEX TOOTHPASTE MINT FREE PASTE [Suspect]
     Active Substance: DECTAFLUR\OLAFLUR\SODIUM FLUORIDE
     Indication: PRODUCT USED FOR UNKNOWN INDICATION
     Route: 048

REACTIONS (3)
  - Oral discomfort [None]
  - Suicidal ideation [None]
  - Nightmare [None]
